FAERS Safety Report 7437271-3 (Version None)
Quarter: 2011Q2

REPORT INFORMATION
  Report Type: 
  Country: None (occurrence: None)
  Receive Date: 20110426
  Receipt Date: 20110420
  Transmission Date: 20111010
  Serious: Yes (Life-Threatening, Hospitalization, Other)
  Sender: FDA-Public Use
  Company Number: DE-TEVA-277556GER

PATIENT
  Age: 85 Year
  Sex: Female
  Weight: 102 kg

DRUGS (1)
  1. FUROSEMID-CT 40 MG TABLETTEN [Suspect]
     Dosage: 120 MILLIGRAM;
     Route: 048
     Dates: start: 20020101, end: 20110202

REACTIONS (1)
  - RENAL FAILURE ACUTE [None]
